FAERS Safety Report 5044876-6 (Version None)
Quarter: 2006Q2

REPORT INFORMATION
  Report Type: 
  Country: None (occurrence: None)
  Receive Date: 20060601
  Receipt Date: 20060410
  Transmission Date: 20061013
  Serious: No
  Sender: FDA-Public Use
  Company Number: 2006-BP-02672BP

PATIENT
  Sex: Female

DRUGS (4)
  1. SPIRIVA [Suspect]
     Indication: CHRONIC OBSTRUCTIVE PULMONARY DISEASE
     Dosage: 18 MCG (18 MCG,1 IN 1 D), IH
  2. COMBIVENT (COMBIVENT/01261001/) [Concomitant]
  3. ZOLOFT [Concomitant]
  4. FORADIL [Concomitant]

REACTIONS (1)
  - DRUG INEFFECTIVE [None]
